FAERS Safety Report 21656328 (Version 1)
Quarter: 2022Q4

REPORT INFORMATION
  Report Type: Spontaneous
  Country: US (occurrence: None)
  Receive Date: 20221128
  Receipt Date: 20221128
  Transmission Date: 20230113
  Serious: No
  Sender: FDA-Public Use
  Company Number: None

PATIENT
  Age: 59 Year
  Sex: Female

DRUGS (1)
  1. ENBREL [Suspect]
     Active Substance: ETANERCEPT
     Indication: Rheumatoid arthritis
     Route: 058
     Dates: start: 202210, end: 202211

REACTIONS (4)
  - Pyrexia [None]
  - Cough [None]
  - Dysphagia [None]
  - Viral infection [None]

NARRATIVE: CASE EVENT DATE: 20221128
